FAERS Safety Report 8560840-4 (Version None)
Quarter: 2012Q3

REPORT INFORMATION
  Report Type: 
  Country: None (occurrence: None)
  Receive Date: 20120802
  Receipt Date: 20120720
  Transmission Date: 20120928
  Serious: Yes (Death, Hospitalization, Disabling, Other)
  Sender: FDA-Public Use
  Company Number: US-009507513-1205USA02879

PATIENT

DRUGS (1)
  1. FOSAMAX [Suspect]
     Indication: OSTEOPOROSIS
     Dosage: 70 MG, QW
     Route: 048
     Dates: start: 20010424

REACTIONS (14)
  - FEMUR FRACTURE [None]
  - OSTEOPOROSIS [None]
  - EMOTIONAL DISTRESS [None]
  - IMPAIRED HEALING [None]
  - MULTIPLE INJURIES [None]
  - PAIN [None]
  - STRESS FRACTURE [None]
  - LOW TURNOVER OSTEOPATHY [None]
  - DENTAL CARIES [None]
  - BONE DISORDER [None]
  - DEATH [None]
  - HYPERTENSION [None]
  - RAYNAUD'S PHENOMENON [None]
  - UNEVALUABLE EVENT [None]
